FAERS Safety Report 9260803 (Version 1)
Quarter: 2013Q1

REPORT INFORMATION
  Report Type: Spontaneous
  Country: US (occurrence: None)
  Receive Date: 20121212
  Receipt Date: 20121212
  Transmission Date: 20140127
  Serious: No
  Sender: FDA-Public Use
  Company Number: 1210USA004414

PATIENT
  Age: 57 Year
  Sex: Female

DRUGS (2)
  1. RIBAVIRIN [Suspect]
  2. VICTRELIS (BOCEPREVIR) CAPSULE [Suspect]
     Indication: HEPATITIS C
     Dates: start: 2012

REACTIONS (7)
  - Chest pain [None]
  - Feeling hot [None]
  - Dysgeusia [None]
  - Asthenia [None]
  - Dizziness [None]
  - Dizziness [None]
  - Nausea [None]
